FAERS Safety Report 9707350 (Version 1)
Quarter: 2013Q4

REPORT INFORMATION
  Report Type: Spontaneous
  Country: US (occurrence: US)
  Receive Date: 20131125
  Receipt Date: 20131125
  Transmission Date: 20140711
  Serious: No
  Sender: FDA-Public Use
  Company Number: US-GLAXOSMITHKLINE-A1028183A

PATIENT
  Age: 9 Year
  Sex: Male

DRUGS (3)
  1. FLOVENT [Suspect]
     Indication: ASTHMA
     Dosage: 1PUFF TWICE PER DAY
     Route: 055
     Dates: start: 2010
  2. NASONEX [Concomitant]
  3. ELAVIL [Concomitant]

REACTIONS (3)
  - Extra dose administered [Unknown]
  - Product quality issue [Unknown]
  - Drug administration error [Unknown]
